FAERS Safety Report 5011004-2 (Version None)
Quarter: 2006Q2

REPORT INFORMATION
  Report Type: 
  Country: None (occurrence: None)
  Receive Date: 20060523
  Receipt Date: 20060508
  Transmission Date: 20061013
  Serious: Yes (Life-Threatening, Other)
  Sender: FDA-Public Use
  Company Number: GBR-2005-0001903

PATIENT
  Age: 73 Year
  Sex: Male

DRUGS (1)
  1. OXYNORM [Suspect]
     Dosage: 20 ML, ORAL
     Route: 048
     Dates: start: 20050901

REACTIONS (9)
  - ACCIDENTAL OVERDOSE [None]
  - ALANINE AMINOTRANSFERASE INCREASED [None]
  - BLOOD ALKALINE PHOSPHATASE INCREASED [None]
  - BLOOD BILIRUBIN INCREASED [None]
  - BLOOD PRESSURE DECREASED [None]
  - BLOOD PRESSURE INCREASED [None]
  - INCORRECT DOSE ADMINISTERED [None]
  - RENAL IMPAIRMENT [None]
  - SEDATION [None]
